FAERS Safety Report 25096451 (Version 1)
Quarter: 2025Q1

REPORT INFORMATION
  Report Type: Spontaneous
  Country: US (occurrence: US)
  Receive Date: 20250319
  Receipt Date: 20250319
  Transmission Date: 20250409
  Serious: No
  Sender: TEIKOKU
  Company Number: US-Teikoku Pharma USA-TPU2017-00655

PATIENT
  Age: 72 Year
  Sex: Male
  Weight: 83.46 kg

DRUGS (27)
  1. LIDOCAINE PATCH [Suspect]
     Active Substance: LIDOCAINE
     Indication: Spinal disorder
     Dates: start: 2015
  2. LIDOCAINE PATCH [Suspect]
     Active Substance: LIDOCAINE
     Indication: Procedural pain
     Route: 061
  3. LIDOCAINE PATCH [Suspect]
     Active Substance: LIDOCAINE
     Indication: Arthralgia
  4. LIDODERM [Suspect]
     Active Substance: LIDOCAINE
     Indication: Back pain
     Route: 061
     Dates: start: 2013
  5. AMLODIPINE [Concomitant]
     Active Substance: AMLODIPINE BESYLATE
     Indication: Blood pressure diastolic increased
     Route: 048
  6. AMLODIPINE [Concomitant]
     Active Substance: AMLODIPINE BESYLATE
  7. ATORVASTATIN [Concomitant]
     Active Substance: ATORVASTATIN
     Indication: Blood cholesterol increased
     Route: 048
  8. ATORVASTATIN [Concomitant]
     Active Substance: ATORVASTATIN
  9. CARVEDILOL [Concomitant]
     Active Substance: CARVEDILOL
     Indication: Blood cholesterol increased
     Dosage: ONE TABLET IN THE MORNING AND ONE TABLET AT NIGHT
     Route: 048
  10. CARVEDILOL [Concomitant]
     Active Substance: CARVEDILOL
  11. VITAMIN B12 [Concomitant]
     Active Substance: CYANOCOBALAMIN
  12. DULOXETINE [Concomitant]
     Active Substance: DULOXETINE
     Dosage: ONE CAPSULE IN THE EVENING
     Route: 048
  13. DULOXETINE [Concomitant]
     Active Substance: DULOXETINE
     Dosage: ONE CAPSULE IN THE MORNING
     Route: 048
  14. DULOXETINE [Concomitant]
     Active Substance: DULOXETINE
     Dosage: 30MG IN THE MORNING AND 60MG AT NIGHT
  15. FAMOTIDINE [Concomitant]
     Active Substance: FAMOTIDINE
     Route: 048
  16. Fenofibrate (Tricor) [Concomitant]
     Indication: Blood cholesterol increased
     Route: 048
  17. Fenofibrate (Tricor) [Concomitant]
  18. HYDROCHLOROTHIAZIDE [Concomitant]
     Active Substance: HYDROCHLOROTHIAZIDE
     Route: 048
  19. LISINOPRIL [Concomitant]
     Active Substance: LISINOPRIL
     Indication: Blood pressure diastolic increased
     Dosage: ONE TABLET IN THE MORNING AND ONE TABLET AT NIGHT
     Route: 048
  20. LISINOPRIL [Concomitant]
     Active Substance: LISINOPRIL
  21. METFORMIN [Concomitant]
     Active Substance: METFORMIN HYDROCHLORIDE
     Indication: Diabetes mellitus
     Route: 048
  22. METFORMIN [Concomitant]
     Active Substance: METFORMIN HYDROCHLORIDE
  23. VOLTAREN [Concomitant]
     Active Substance: DICLOFENAC SODIUM
     Indication: Back pain
     Route: 061
     Dates: start: 2013
  24. OMEGA 3 [Concomitant]
     Active Substance: CAPSAICIN
     Indication: Blood cholesterol increased
  25. RANITIDINE [Concomitant]
     Active Substance: RANITIDINE
  26. VIIBRYD [Concomitant]
     Active Substance: VILAZODONE HYDROCHLORIDE
  27. ALPRAZOLAM [Concomitant]
     Active Substance: ALPRAZOLAM
     Indication: Anxiety

REACTIONS (5)
  - Renal function test [Unknown]
  - Cataract operation [Unknown]
  - Protein urine present [Unknown]
  - Cataract operation [Unknown]
  - Fatigue [Not Recovered/Not Resolved]

NARRATIVE: CASE EVENT DATE: 20180201
